FAERS Safety Report 20539938 (Version 1)
Quarter: 2022Q1

REPORT INFORMATION
  Report Type: Spontaneous
  Country: JP (occurrence: JP)
  Receive Date: 20220302
  Receipt Date: 20220302
  Transmission Date: 20220423
  Serious: Yes (Other)
  Sender: FDA-Public Use
  Company Number: JP-MTPC-MTPC2021-0025905

PATIENT
  Age: 33 Year
  Sex: Male

DRUGS (5)
  1. REMICADE [Suspect]
     Active Substance: INFLIXIMAB
     Indication: Crohn^s disease
     Dosage: UNK UNK, QD
     Route: 042
     Dates: start: 20210322
  2. REMICADE [Suspect]
     Active Substance: INFLIXIMAB
     Dosage: 10 MILLIGRAM/KILOGRAM, QD
     Route: 042
     Dates: start: 202106
  3. REMICADE [Suspect]
     Active Substance: INFLIXIMAB
     Dosage: 10 MILLIGRAM/KILOGRAM, QD
     Route: 042
  4. REMICADE [Suspect]
     Active Substance: INFLIXIMAB
     Dosage: 5 MILLIGRAM/KILOGRAM, QD
     Route: 042
  5. HUMIRA [Concomitant]
     Active Substance: ADALIMUMAB
     Route: 065

REACTIONS (1)
  - Renal impairment [Recovering/Resolving]

NARRATIVE: CASE EVENT DATE: 20210901
